FAERS Safety Report 21015579 (Version 8)
Quarter: 2022Q4

REPORT INFORMATION
  Report Type: Report from Study
  Country: JP (occurrence: JP)
  Receive Date: 20220628
  Receipt Date: 20221115
  Transmission Date: 20230112
  Serious: Yes (Hospitalization, Other)
  Sender: FDA-Public Use
  Company Number: JP-ABBVIE-22K-087-4446812-00

PATIENT
  Age: 69 Year
  Sex: Male

DRUGS (16)
  1. SKYRIZI [Suspect]
     Active Substance: RISANKIZUMAB-RZAA
     Indication: Psoriasis
     Dosage: FIRST REGIMEN
     Route: 058
     Dates: start: 20200902, end: 20200930
  2. SKYRIZI [Suspect]
     Active Substance: RISANKIZUMAB-RZAA
     Dosage: SECOND REGIMEN
     Route: 058
     Dates: start: 20200930
  3. ALLOPURINOL [Concomitant]
     Active Substance: ALLOPURINOL
     Indication: Hyperuricaemia
     Dosage: 100 MILLIGRAM
     Route: 048
     Dates: start: 20180627
  4. OMEGA-3 FATTY ACIDS [Concomitant]
     Active Substance: OMEGA-3 FATTY ACIDS
     Indication: Lipid metabolism disorder
     Route: 048
     Dates: start: 20180221
  5. LIRANAFTATE [Concomitant]
     Active Substance: LIRANAFTATE
     Indication: Tinea infection
     Dosage: 0.2 GRAM
     Route: 061
     Dates: start: 20130214
  6. ROCURONIUM BROMIDE [Concomitant]
     Active Substance: ROCURONIUM BROMIDE
     Indication: Hypotonia
     Dosage: 50 MILLIGRAM
     Route: 041
     Dates: start: 20220825, end: 20220825
  7. REMIFENTANIL HYDROCHLORIDE [Concomitant]
     Active Substance: REMIFENTANIL HYDROCHLORIDE
     Indication: Analgesic therapy
     Dosage: 5 MILLIGRAM
     Route: 041
     Dates: start: 20220825, end: 20220825
  8. PROPOFOL [Concomitant]
     Active Substance: PROPOFOL
     Indication: General anaesthesia
     Dosage: 200 MILLIGRAM
     Route: 041
     Dates: start: 20220825, end: 20220825
  9. Calcipotriol hydrate betemethasone dipropionate [Concomitant]
     Indication: Psoriasis
     Dosage: 0.1 GRAM
     Route: 061
     Dates: start: 20181212
  10. LOXOPROFEN SODIUM DIHYDRATE [Concomitant]
     Active Substance: LOXOPROFEN SODIUM DIHYDRATE
     Indication: Postoperative analgesia
     Dosage: 60 MILLIGRAM
     Route: 048
     Dates: start: 20220826, end: 20220826
  11. AZILSARTAN KAMEDOXOMIL [Concomitant]
     Active Substance: AZILSARTAN KAMEDOXOMIL
     Indication: Hypertension
     Dosage: 40 MILLIGRAM
     Route: 048
     Dates: start: 20220928
  12. AZILSARTAN KAMEDOXOMIL [Concomitant]
     Active Substance: AZILSARTAN KAMEDOXOMIL
     Indication: Hypertension
     Dosage: 20 MILLIGRAM
     Route: 048
     Dates: start: 20220810, end: 20220927
  13. DESFLURANE [Concomitant]
     Active Substance: DESFLURANE
     Indication: General anaesthesia
     Dosage: 78.79 MILLILITER
     Route: 055
     Dates: start: 20220825, end: 20220825
  14. CEFAZOLIN SODIUM [Concomitant]
     Active Substance: CEFAZOLIN SODIUM
     Indication: Infection prophylaxis
     Dosage: 1 GRAM
     Route: 041
     Dates: start: 20220825, end: 20220825
  15. FENTANYL CITRATE [Concomitant]
     Active Substance: FENTANYL CITRATE
     Indication: General anaesthesia
     Dosage: 8 MILLILITER
     Route: 041
     Dates: start: 20220825, end: 20220825
  16. EPHEDRINE HYDROCHLORIDE [Concomitant]
     Active Substance: EPHEDRINE HYDROCHLORIDE
     Indication: Blood pressure management
     Dosage: 40 MILLIGRAM
     Route: 041
     Dates: start: 20220825, end: 20220825

REACTIONS (2)
  - Salivary gland neoplasm [Recovered/Resolved]
  - Hypertension [Not Recovered/Not Resolved]

NARRATIVE: CASE EVENT DATE: 20210101
